FAERS Safety Report 9928319 (Version 1)
Quarter: 2014Q1

REPORT INFORMATION
  Report Type: Spontaneous
  Country: US (occurrence: US)
  Receive Date: 20140227
  Receipt Date: 20140227
  Transmission Date: 20141002
  Serious: No
  Sender: FDA-Public Use
  Company Number: US-BAYER-2014-030572

PATIENT
  Age: 77 Year
  Sex: Female
  Weight: 65.31 kg

DRUGS (4)
  1. ALEVE TABLET [Suspect]
     Indication: ARTHRITIS
     Dosage: 1 DF, QD
     Route: 048
     Dates: start: 201312
  2. PANTOPRAZOLE [Concomitant]
  3. ONE A DAY WOMENS VITACRAVES GUMMIES [Concomitant]
  4. CITRACAL PETITES [Concomitant]

REACTIONS (2)
  - Drug ineffective [None]
  - Incorrect drug administration duration [None]
